FAERS Safety Report 25664744 (Version 1)
Quarter: 2025Q3

REPORT INFORMATION
  Report Type: Spontaneous
  Country: EU (occurrence: EU)
  Receive Date: 20250811
  Receipt Date: 20250811
  Transmission Date: 20251021
  Serious: Yes (Other)
  Sender: MYLAN
  Company Number: EU-JNJFOC-20250723968

PATIENT
  Age: 68 Year
  Sex: Male

DRUGS (16)
  1. DEXAMETHASONE [Suspect]
     Active Substance: DEXAMETHASONE
     Indication: Product used for unknown indication
  2. DEXAMETHASONE [Suspect]
     Active Substance: DEXAMETHASONE
     Route: 065
  3. DEXAMETHASONE [Suspect]
     Active Substance: DEXAMETHASONE
     Route: 065
  4. DEXAMETHASONE [Suspect]
     Active Substance: DEXAMETHASONE
  5. DARZALEX [Suspect]
     Active Substance: DARATUMUMAB
     Indication: Product used for unknown indication
  6. DARZALEX [Suspect]
     Active Substance: DARATUMUMAB
     Route: 065
  7. DARZALEX [Suspect]
     Active Substance: DARATUMUMAB
     Route: 065
  8. DARZALEX [Suspect]
     Active Substance: DARATUMUMAB
  9. VELCADE [Suspect]
     Active Substance: BORTEZOMIB
     Indication: Product used for unknown indication
  10. VELCADE [Suspect]
     Active Substance: BORTEZOMIB
     Route: 065
  11. VELCADE [Suspect]
     Active Substance: BORTEZOMIB
     Route: 065
  12. VELCADE [Suspect]
     Active Substance: BORTEZOMIB
  13. REVLIMID [Suspect]
     Active Substance: LENALIDOMIDE
     Indication: Product used for unknown indication
  14. REVLIMID [Suspect]
     Active Substance: LENALIDOMIDE
     Route: 065
  15. REVLIMID [Suspect]
     Active Substance: LENALIDOMIDE
     Route: 065
  16. REVLIMID [Suspect]
     Active Substance: LENALIDOMIDE

REACTIONS (2)
  - Respiratory distress [Unknown]
  - Administration related reaction [Unknown]
